FAERS Safety Report 6074237-2 (Version None)
Quarter: 2009Q1

REPORT INFORMATION
  Report Type: 
  Country: None (occurrence: None)
  Receive Date: 20090211
  Receipt Date: 20090206
  Transmission Date: 20090719
  Serious: Yes (Other)
  Sender: FDA-Public Use
  Company Number: CA-GENENTECH-272983

PATIENT
  Sex: Male

DRUGS (1)
  1. RAPTIVA [Suspect]
     Indication: PSORIASIS
     Dosage: 75 MG, 1/WEEK
     Route: 058
     Dates: start: 20080214, end: 20081210

REACTIONS (1)
  - LYMPHOCYTE MORPHOLOGY ABNORMAL [None]
